FAERS Safety Report 18390600 (Version 3)
Quarter: 2020Q4

REPORT INFORMATION
  Report Type: Report from Study
  Country: US (occurrence: US)
  Receive Date: 20201015
  Receipt Date: 20201204
  Transmission Date: 20210114
  Serious: Yes (Other)
  Sender: FDA-Public Use
  Company Number: NVSC2020US274448

PATIENT
  Sex: Male

DRUGS (2)
  1. ENTRESTO [Suspect]
     Active Substance: SACUBITRIL\VALSARTAN
     Dosage: 50 MG (24/26MG), BID
     Route: 048
  2. ENTRESTO [Suspect]
     Active Substance: SACUBITRIL\VALSARTAN
     Indication: PRODUCT USED FOR UNKNOWN INDICATION
     Dosage: 100 MG (49/51MG), BID
     Route: 048
     Dates: start: 2014

REACTIONS (5)
  - Peripheral swelling [Unknown]
  - Renal impairment [Unknown]
  - Dyspnoea [Unknown]
  - Diabetic neuropathy [Unknown]
  - Dehydration [Unknown]

NARRATIVE: CASE EVENT DATE: 2020
